FAERS Safety Report 9496224 (Version 1)
Quarter: 2013Q3

REPORT INFORMATION
  Report Type: Spontaneous
  Country: GB (occurrence: None)
  Receive Date: 20130829
  Receipt Date: 20130829
  Transmission Date: 20140515
  Serious: Yes (Other)
  Sender: FDA-Public Use
  Company Number: GER/UKI/13/0034311

PATIENT
  Age: 64 Year
  Sex: 0

DRUGS (4)
  1. ZOLEDRONIC ACID (ZOLEDRONIC ACID) [Suspect]
     Indication: PRODUCT USED FOR UNKNOWN INDICATION
  2. CALCICHEW D3 (LEKOVIT CA) [Concomitant]
  3. CLADRIBINE (CLADRIBINE) [Concomitant]
  4. DISODIUM CROMOGLYCATE (CROMOGLICATE SODIUM) [Concomitant]

REACTIONS (1)
  - Osteoporosis [None]
